FAERS Safety Report 8074375-9 (Version None)
Quarter: 2012Q1

REPORT INFORMATION
  Report Type: 
  Country: None (occurrence: None)
  Receive Date: 20120126
  Receipt Date: 20120123
  Transmission Date: 20120608
  Serious: Yes (Death)
  Sender: FDA-Public Use
  Company Number: US-GLAXOSMITHKLINE-A0958068A

PATIENT
  Age: 67 Year
  Sex: Female
  Weight: 57.7 kg

DRUGS (1)
  1. VOTRIENT [Suspect]
     Indication: UTERINE CANCER
     Dosage: 200MG UNKNOWN
     Route: 065
     Dates: start: 20110922, end: 20111011

REACTIONS (2)
  - NEOPLASM MALIGNANT [None]
  - OFF LABEL USE [None]
